FAERS Safety Report 5016187-6 (Version None)
Quarter: 2006Q2

REPORT INFORMATION
  Report Type: 
  Country: None (occurrence: None)
  Receive Date: 20060414
  Receipt Date: 20060213
  Transmission Date: 20061013
  Serious: No
  Sender: FDA-Public Use
  Company Number: 2006SP000743

PATIENT
  Age: 34 Year
  Sex: Female
  Weight: 52.6173 kg

DRUGS (3)
  1. LUNESTA [Suspect]
     Indication: INSOMNIA
     Dosage: SEE IMAGE
     Route: 048
     Dates: start: 20060210, end: 20060210
  2. LUNESTA [Suspect]
     Indication: INSOMNIA
     Dosage: SEE IMAGE
     Route: 048
     Dates: start: 20060202
  3. AMBIEN [Concomitant]

REACTIONS (4)
  - ANXIETY [None]
  - HEADACHE [None]
  - INSOMNIA [None]
  - NASOPHARYNGITIS [None]
